FAERS Safety Report 17756680 (Version 1)
Quarter: 2020Q2

REPORT INFORMATION
  Report Type: Spontaneous
  Country: US (occurrence: US)
  Receive Date: 20200507
  Receipt Date: 20200507
  Transmission Date: 20200714
  Serious: Yes (Other)
  Sender: FDA-Public Use
  Company Number: None

PATIENT
  Age: 66 Year
  Sex: Female

DRUGS (9)
  1. ATORVASTATIN 20MG [Concomitant]
     Active Substance: ATORVASTATIN
  2. BENZTROPINE 1MG [Concomitant]
     Active Substance: BENZTROPINE
  3. ATENOLOL 25MG [Concomitant]
     Active Substance: ATENOLOL
  4. TRESIBA FLEXTOUCH 100UNIT/ML [Concomitant]
  5. AUSTEDO [Suspect]
     Active Substance: DEUTETRABENAZINE
     Indication: TARDIVE DYSKINESIA
     Route: 048
     Dates: start: 20200222
  6. PROTONIX [Concomitant]
     Active Substance: PANTOPRAZOLE SODIUM
  7. RISPERDAL [Concomitant]
     Active Substance: RISPERIDONE
  8. VALSARTAN 80MG [Concomitant]
     Active Substance: VALSARTAN
  9. CYANOCOPALAMIN 1000MCG/ML [Concomitant]

REACTIONS (3)
  - Confusional state [None]
  - Vision blurred [None]
  - Memory impairment [None]

NARRATIVE: CASE EVENT DATE: 20200507
